FAERS Safety Report 9943322 (Version 1)
Quarter: 2014Q1

REPORT INFORMATION
  Report Type: Spontaneous
  Country: DE (occurrence: DE)
  Receive Date: 20140303
  Receipt Date: 20140303
  Transmission Date: 20141002
  Serious: Yes (Other)
  Sender: FDA-Public Use
  Company Number: DE-TEVA-464987GER

PATIENT
  Age: 29 Year
  Sex: Female

DRUGS (4)
  1. SERTRALINE [Suspect]
     Indication: DEPRESSION
     Dosage: 100MG/D
     Route: 048
  2. LAMOTRIGINE [Suspect]
     Indication: BIPOLAR DISORDER
     Dosage: 200 [MG/D ]/ HIGHER DOSE OF 200 MG/D SINCE WEEK 15
     Route: 048
  3. L-THYROXIN HENNING [Concomitant]
     Indication: AUTOIMMUNE THYROIDITIS
     Dosage: 75 [MICROGRAMM/D ]
     Route: 048
  4. CORDES BPO 5 [Concomitant]
     Indication: ACNE
     Route: 003
     Dates: start: 20120407, end: 20120518

REACTIONS (4)
  - Eclampsia [Unknown]
  - Convulsion [Unknown]
  - Live birth [Unknown]
  - Pre-eclampsia [Unknown]
